FAERS Safety Report 11142688 (Version 1)
Quarter: 2015Q2

REPORT INFORMATION
  Report Type: Spontaneous
  Country: US (occurrence: None)
  Receive Date: 20150526
  Receipt Date: 20150526
  Transmission Date: 20150821
  Serious: No
  Sender: FDA-Public Use
  Company Number: None

PATIENT
  Age: 39 Year
  Sex: Female
  Weight: 73.94 kg

DRUGS (2)
  1. SYNTHROID [Concomitant]
     Active Substance: LEVOTHYROXINE SODIUM
  2. PHENTERMINE (PHENTERMINE) [Suspect]
     Active Substance: PHENTERMINE
     Indication: WEIGHT CONTROL
     Dates: end: 20150501

REACTIONS (4)
  - Thyroid disorder [None]
  - Alopecia [None]
  - Weight loss poor [None]
  - Menorrhagia [None]

NARRATIVE: CASE EVENT DATE: 20150501
